FAERS Safety Report 10921273 (Version 2)
Quarter: 2015Q2

REPORT INFORMATION
  Report Type: Spontaneous
  Country: US (occurrence: US)
  Receive Date: 20150317
  Receipt Date: 20150527
  Transmission Date: 20150821
  Serious: Yes (Disabling, Other)
  Sender: FDA-Public Use
  Company Number: US-CELGENE-USA-2015031778

PATIENT
  Age: 27 Year
  Sex: Male

DRUGS (1)
  1. OTEZLA [Suspect]
     Active Substance: APREMILAST
     Indication: PSORIASIS
     Dosage: 60 MILLIGRAM
     Route: 048
     Dates: start: 201411, end: 20150227

REACTIONS (2)
  - Accident [Recovered/Resolved with Sequelae]
  - Spinal column injury [Recovered/Resolved with Sequelae]

NARRATIVE: CASE EVENT DATE: 201501
